FAERS Safety Report 5411952-5 (Version None)
Quarter: 2007Q3

REPORT INFORMATION
  Report Type: 
  Country: None (occurrence: None)
  Receive Date: 20070813
  Receipt Date: 20070809
  Transmission Date: 20080115
  Serious: Yes (Hospitalization)
  Sender: FDA-Public Use
  Company Number: DE-BRISTOL-MYERS SQUIBB COMPANY-13872452

PATIENT
  Age: 42 Year
  Sex: Female
  Weight: 59 kg

DRUGS (6)
  1. VEPESID [Suspect]
     Dates: start: 20070427, end: 20070713
  2. ENDOXAN [Suspect]
     Dates: start: 20070427, end: 20070713
  3. DOXORUBICIN HCL [Suspect]
     Dates: start: 20070427, end: 20070713
  4. VINCRISTINE [Suspect]
     Dates: start: 20070504, end: 20070720
  5. BLEOMYCIN [Suspect]
     Dates: start: 20070504, end: 20070720
  6. NATULAN [Suspect]
     Dates: start: 20070427, end: 20070719

REACTIONS (4)
  - CIRCULATORY COLLAPSE [None]
  - PANCYTOPENIA [None]
  - PYREXIA [None]
  - RENAL FAILURE ACUTE [None]
